FAERS Safety Report 14015898 (Version 1)
Quarter: 2017Q3

REPORT INFORMATION
  Report Type: Spontaneous
  Country: US (occurrence: US)
  Receive Date: 20170927
  Receipt Date: 20170927
  Transmission Date: 20171128
  Serious: Yes (Death)
  Sender: FDA-Public Use
  Company Number: US-JNJFOC-20170900288

PATIENT
  Age: 89 Year
  Sex: Male

DRUGS (15)
  1. FINASTERIDE. [Concomitant]
     Active Substance: FINASTERIDE
  2. MULTIVITAMINS [Concomitant]
     Active Substance: VITAMINS
  3. SYMBICORT [Concomitant]
     Active Substance: BUDESONIDE\FORMOTEROL FUMARATE DIHYDRATE
  4. IMBRUVICA [Suspect]
     Active Substance: IBRUTINIB
     Indication: CHRONIC LYMPHOCYTIC LEUKAEMIA
     Route: 048
     Dates: start: 20170503, end: 201706
  5. CALCIUM [Concomitant]
     Active Substance: CALCIUM
  6. HYDROXYCHLOROQUINE [Concomitant]
     Active Substance: HYDROXYCHLOROQUINE
  7. OMEPRAZOLE. [Concomitant]
     Active Substance: OMEPRAZOLE
  8. SULFASALAZINE. [Concomitant]
     Active Substance: SULFASALAZINE
  9. VESICARE [Concomitant]
     Active Substance: SOLIFENACIN SUCCINATE
  10. IMBRUVICA [Suspect]
     Active Substance: IBRUTINIB
     Indication: CHRONIC LYMPHOCYTIC LEUKAEMIA
     Route: 048
     Dates: start: 2017
  11. VITAMIN D [Concomitant]
     Active Substance: CHOLECALCIFEROL
  12. VENTOLIN HFA [Concomitant]
     Active Substance: ALBUTEROL SULFATE
  13. ALLOPURINOL. [Concomitant]
     Active Substance: ALLOPURINOL
  14. ISONIAZID. [Concomitant]
     Active Substance: ISONIAZID
  15. TAMSULOSIN [Concomitant]
     Active Substance: TAMSULOSIN

REACTIONS (3)
  - Incorrect dose administered [Unknown]
  - Off label use [Unknown]
  - Death [Fatal]

NARRATIVE: CASE EVENT DATE: 2017
